FAERS Safety Report 19796944 (Version 1)
Quarter: 2021Q3

REPORT INFORMATION
  Report Type: Spontaneous
  Country: US (occurrence: US)
  Receive Date: 20210901
  Receipt Date: 20210901
  Transmission Date: 20211014
  Serious: Yes (Hospitalization)
  Sender: FDA-Public Use
  Company Number: None

PATIENT
  Sex: Female

DRUGS (1)
  1. CEPROTIN [Suspect]
     Active Substance: PROTEIN C
     Indication: HYPERCOAGULATION
     Dosage: ?          OTHER STRENGTH:500 UNIT;OTHER DOSE:1500 UNITS;?
     Route: 058
     Dates: start: 202105

REACTIONS (2)
  - Seizure [None]
  - COVID-19 [None]
